FAERS Safety Report 19020338 (Version 1)
Quarter: 2021Q1

REPORT INFORMATION
  Report Type: Spontaneous
  Country: US (occurrence: US)
  Receive Date: 20210317
  Receipt Date: 20210317
  Transmission Date: 20210420
  Serious: Yes (Other)
  Sender: FDA-Public Use
  Company Number: US-BAYER-2021-101063

PATIENT
  Age: 57 Year
  Sex: Female

DRUGS (2)
  1. CLIMARA [Suspect]
     Active Substance: ESTRADIOL
     Dosage: UNK
     Route: 062
     Dates: start: 201808
  2. MINIVELLE [Concomitant]
     Active Substance: ESTRADIOL

REACTIONS (3)
  - Uterine leiomyoma [Recovering/Resolving]
  - Uterine enlargement [Recovering/Resolving]
  - Genital haemorrhage [Recovering/Resolving]

NARRATIVE: CASE EVENT DATE: 201808
